FAERS Safety Report 7431254-5 (Version None)
Quarter: 2011Q2

REPORT INFORMATION
  Report Type: 
  Country: None (occurrence: None)
  Receive Date: 20110421
  Receipt Date: 20110412
  Transmission Date: 20111010
  Serious: Yes (Death, Hospitalization)
  Sender: FDA-Public Use
  Company Number: US-AMGEN-USASP2011019375

PATIENT
  Age: 65 Year
  Sex: Male

DRUGS (3)
  1. INSULIN [Concomitant]
  2. NPH INSULIN [Concomitant]
  3. EPOGEN [Suspect]
     Indication: RENAL FAILURE CHRONIC
     Dosage: UNK
     Dates: start: 20090101, end: 20110113

REACTIONS (3)
  - DIABETIC GANGRENE [None]
  - SEPSIS [None]
  - DIABETIC FOOT [None]
